FAERS Safety Report 6097073-X (Version None)
Quarter: 2009Q1

REPORT INFORMATION
  Report Type: 
  Country: None (occurrence: None)
  Receive Date: 20090227
  Receipt Date: 20090218
  Transmission Date: 20090719
  Serious: Yes (Death, Hospitalization, Other)
  Sender: FDA-Public Use
  Company Number: BE-ABBOTT-08P-013-0478128-00

PATIENT
  Sex: Male

DRUGS (2)
  1. DEPAKENE [Suspect]
     Indication: EPILEPSY
     Route: 048
     Dates: start: 20080601, end: 20080818
  2. DEPAKENE [Suspect]
     Route: 048
     Dates: start: 20080530

REACTIONS (8)
  - ACTIVATED PARTIAL THROMBOPLASTIN TIME PROLONGED [None]
  - ACUTE HEPATIC FAILURE [None]
  - LIVER FUNCTION TEST ABNORMAL [None]
  - MULTI-ORGAN FAILURE [None]
  - NAUSEA [None]
  - PROTHROMBIN TIME RATIO DECREASED [None]
  - TRANSAMINASES INCREASED [None]
  - VOMITING [None]
